FAERS Safety Report 5585958-X (Version None)
Quarter: 2007Q4

REPORT INFORMATION
  Report Type: 
  Country: None (occurrence: None)
  Receive Date: 20071205
  Receipt Date: 20070530
  Transmission Date: 20080405
  Serious: Yes (Death)
  Sender: FDA-Public Use
  Company Number: HQWYE430831MAY07

PATIENT
  Age: 65 Year
  Sex: Male
  Weight: 77.18 kg

DRUGS (1)
  1. EFFEXOR XR [Suspect]
     Indication: DEPRESSION
     Dosage: 75 MG 1X PER 1 DAY, ORAL
     Route: 048
     Dates: start: 20070401, end: 20070526

REACTIONS (1)
  - COMPLETED SUICIDE [None]
